FAERS Safety Report 5151124-5 (Version None)
Quarter: 2006Q4

REPORT INFORMATION
  Report Type: 
  Country: None (occurrence: None)
  Receive Date: 20061115
  Receipt Date: 20061106
  Transmission Date: 20070319
  Serious: Yes (Hospitalization)
  Sender: FDA-Public Use
  Company Number: FR-JNJFOC-20061003585

PATIENT
  Sex: Male
  Weight: 70 kg

DRUGS (5)
  1. RISPERDAL [Suspect]
     Indication: AGGRESSION
     Route: 048
  2. DEPAKENE [Concomitant]
     Route: 065
  3. TERCIAN [Concomitant]
     Route: 065
  4. SOLIAN [Concomitant]
  5. PARKINANE LP [Concomitant]

REACTIONS (1)
  - STEVENS-JOHNSON SYNDROME [None]
